FAERS Safety Report 6764418-4 (Version None)
Quarter: 2010Q2

REPORT INFORMATION
  Report Type: 
  Country: None (occurrence: None)
  Receive Date: 20100610
  Receipt Date: 20100602
  Transmission Date: 20101027
  Serious: Yes (Hospitalization)
  Sender: FDA-Public Use
  Company Number: FR-ROCHE-707891

PATIENT
  Age: 50 Year
  Sex: Male

DRUGS (1)
  1. INTERFERON ALFA [Suspect]
     Indication: DRUG USE FOR UNKNOWN INDICATION
     Route: 065
     Dates: end: 20100404

REACTIONS (6)
  - ANXIETY [None]
  - CONFUSIONAL STATE [None]
  - DELUSION [None]
  - DEPRESSION [None]
  - MEMORY IMPAIRMENT [None]
  - NO ADVERSE EVENT [None]
